FAERS Safety Report 26212808 (Version 1)
Quarter: 2025Q4

REPORT INFORMATION
  Report Type: Spontaneous
  Country: US (occurrence: US)
  Receive Date: 20251230
  Receipt Date: 20251230
  Transmission Date: 20260117
  Serious: Yes (Hospitalization)
  Sender: SANDOZ
  Company Number: US-INCYTE CORPORATION-2025IN012769

PATIENT
  Age: 78 Year
  Sex: Male
  Weight: 78.3 kg

DRUGS (6)
  1. TACROLIMUS [Suspect]
     Active Substance: TACROLIMUS
     Indication: Acute myeloid leukaemia
     Dosage: 3 MG, QD ORAL LIQUID (1.5 MG, BID)
     Dates: start: 20250911
  2. TACROLIMUS [Suspect]
     Active Substance: TACROLIMUS
     Indication: Prophylaxis against graft versus host disease
  3. METHOTREXATE [Suspect]
     Active Substance: METHOTREXATE
     Indication: Acute myeloid leukaemia
     Dosage: 10 MG, QD (INFUSION)
     Dates: start: 20250924
  4. RUXOLITINIB [Suspect]
     Active Substance: RUXOLITINIB
     Indication: Acute myeloid leukaemia
     Dosage: 5 MG, QD
     Dates: start: 20250917
  5. ACYCLOVIR [Concomitant]
     Active Substance: ACYCLOVIR
     Indication: Product used for unknown indication
     Dosage: 400 MG, BID
     Dates: start: 20251002
  6. FLUCONAZOLE [Concomitant]
     Active Substance: FLUCONAZOLE
     Indication: Product used for unknown indication
     Dosage: 200 MG, QD
     Dates: start: 20251009

REACTIONS (3)
  - Delirium [Not Recovered/Not Resolved]
  - Acute kidney injury [Recovered/Resolved]
  - Decreased appetite [Not Recovered/Not Resolved]

NARRATIVE: CASE EVENT DATE: 20251110
